FAERS Safety Report 5232340-0 (Version None)
Quarter: 2007Q1

REPORT INFORMATION
  Report Type: 
  Country: None (occurrence: None)
  Receive Date: 20070207
  Receipt Date: 20070125
  Transmission Date: 20070707
  Serious: Yes (Death)
  Sender: FDA-Public Use
  Company Number: SEWYE342225JAN07

PATIENT
  Sex: Male
  Weight: 45 kg

DRUGS (3)
  1. ENBREL [Suspect]
     Indication: PSORIASIS
     Route: 058
  2. CORODIL [Concomitant]
     Dosage: NOT SPECIFIED
     Route: 048
  3. NEOTIGASON [Concomitant]
     Dosage: 50 MG
     Route: 048

REACTIONS (1)
  - ACUTE MYOCARDIAL INFARCTION [None]
